FAERS Safety Report 4976287-3 (Version None)
Quarter: 2006Q2

REPORT INFORMATION
  Report Type: 
  Country: None (occurrence: None)
  Receive Date: 20060419
  Receipt Date: 20060405
  Transmission Date: 20061013
  Serious: Yes (Hospitalization)
  Sender: FDA-Public Use
  Company Number: FR-ROCHE-443389

PATIENT
  Age: 87 Year
  Sex: Female

DRUGS (11)
  1. ROCEPHIN [Suspect]
     Route: 042
     Dates: start: 20060112, end: 20060112
  2. TIENAM [Suspect]
     Route: 042
     Dates: start: 20060113, end: 20060114
  3. PAROXETINE HYDROCHLORIDE [Concomitant]
  4. MINI-SINTROM [Concomitant]
  5. CIFLOX [Concomitant]
     Dates: start: 20060113, end: 20060118
  6. LASILIX [Concomitant]
  7. AMLOR [Concomitant]
     Dosage: REPORTED AS AMLOR 5.
  8. MADOPAR [Concomitant]
     Dosage: REPORTED AS MADOPAR 60.
  9. LEXOMYL [Concomitant]
  10. IMOVANE [Concomitant]
  11. DOLIPRANE [Concomitant]

REACTIONS (3)
  - COAGULATION TIME PROLONGED [None]
  - FAECALITH [None]
  - INTERNATIONAL NORMALISED RATIO INCREASED [None]
